FAERS Safety Report 9466083 (Version 2)
Quarter: 2013Q3

REPORT INFORMATION
  Report Type: Spontaneous
  Country: US (occurrence: US)
  Receive Date: 20130820
  Receipt Date: 20130820
  Transmission Date: 20140515
  Serious: Yes (Hospitalization, Other)
  Sender: FDA-Public Use
  Company Number: US-ELI_LILLY_AND_COMPANY-US201306001008

PATIENT
  Age: 14 Year
  Sex: Female
  Weight: 63.49 kg

DRUGS (3)
  1. PROZAC [Suspect]
     Indication: ANXIETY
     Dosage: 30 MG, QD
     Route: 048
     Dates: start: 20130228, end: 20130522
  2. PROZAC [Suspect]
     Indication: DEPRESSION
     Dosage: 10 MG, QD
     Route: 048
  3. PROZAC [Suspect]
     Dosage: 20 MG, QD
     Route: 048

REACTIONS (2)
  - Psychogenic seizure [Not Recovered/Not Resolved]
  - Headache [Unknown]
